FAERS Safety Report 4338096-8 (Version None)
Quarter: 2004Q2

REPORT INFORMATION
  Report Type: 
  Country: None (occurrence: None)
  Receive Date: 20040407
  Receipt Date: 20040323
  Transmission Date: 20050107
  Serious: Yes (Hospitalization)
  Sender: FDA-Public Use
  Company Number: 220039

PATIENT
  Age: 68 Year
  Sex: Female
  Weight: 36.3 kg

DRUGS (1)
  1. NOVORAPID PENFILL 3 ML(NOVORAPID PENFILL 3 ML) [Suspect]
     Indication: DIABETES MELLITUS NON-INSULIN-DEPENDENT
     Dosage: 9 IU, QD, UNK
     Dates: start: 20020823, end: 20020913

REACTIONS (3)
  - GASTROENTERITIS [None]
  - REFLUX OESOPHAGITIS [None]
  - VIRAL INFECTION [None]
